FAERS Safety Report 20939128 (Version 2)
Quarter: 2022Q2

REPORT INFORMATION
  Report Type: Spontaneous
  Country: None (occurrence: US)
  Receive Date: 20220609
  Receipt Date: 20220616
  Transmission Date: 20220721
  Serious: No
  Sender: FDA-Public Use
  Company Number: US-Stallergenes SAS-2129647

PATIENT
  Age: 10 Year
  Sex: Male

DRUGS (3)
  1. ORALAIR [Suspect]
     Active Substance: ANTHOXANTHUM ODORATUM POLLEN\DACTYLIS GLOMERATA POLLEN\LOLIUM PERENNE POLLEN\PHLEUM PRATENSE POLLEN\
     Indication: Conjunctivitis allergic
     Route: 048
  2. CLARITIN [Concomitant]
     Active Substance: LORATADINE
  3. ORALAIR [Suspect]
     Active Substance: ANTHOXANTHUM ODORATUM POLLEN\DACTYLIS GLOMERATA POLLEN\LOLIUM PERENNE POLLEN\PHLEUM PRATENSE POLLEN\
     Route: 048

REACTIONS (4)
  - Oral mucosal blistering [Recovered/Resolved]
  - Throat irritation [Not Recovered/Not Resolved]
  - Sneezing [Not Recovered/Not Resolved]
  - Oral mucosal eruption [Unknown]

NARRATIVE: CASE EVENT DATE: 20220502
